FAERS Safety Report 8295766-7 (Version None)
Quarter: 2012Q2

REPORT INFORMATION
  Report Type: 
  Country: None (occurrence: None)
  Receive Date: 20120418
  Receipt Date: 20120410
  Transmission Date: 20120825
  Serious: Yes (Hospitalization)
  Sender: FDA-Public Use
  Company Number: US-US-EMD SERONO, INC.-7125424

PATIENT
  Sex: Female
  Weight: 96 kg

DRUGS (9)
  1. MAGNESIUM [Concomitant]
     Indication: MINERAL SUPPLEMENTATION
  2. IBUPROFEN (ADVIL) [Concomitant]
     Indication: PREMEDICATION
  3. REBIF [Suspect]
     Indication: MULTIPLE SCLEROSIS
     Route: 058
     Dates: start: 20120306
  4. CYMBALTA [Concomitant]
     Indication: ANXIETY
  5. VITAMIN B-12 [Concomitant]
     Indication: VITAMIN SUPPLEMENTATION
  6. CYMBALTA [Concomitant]
     Indication: PAIN
  7. CYMBALTA [Concomitant]
     Indication: DEPRESSION
  8. CALCIUM CARBONATE [Concomitant]
     Indication: MINERAL SUPPLEMENTATION
  9. VITAMIN D [Concomitant]
     Indication: VITAMIN SUPPLEMENTATION

REACTIONS (5)
  - FALL [None]
  - UPPER LIMB FRACTURE [None]
  - HEAD INJURY [None]
  - INJECTION SITE PAIN [None]
  - JOINT DISLOCATION [None]
